FAERS Safety Report 7518916-6 (Version None)
Quarter: 2011Q2

REPORT INFORMATION
  Report Type: 
  Country: None (occurrence: None)
  Receive Date: 20110602
  Receipt Date: 20110524
  Transmission Date: 20111010
  Serious: Yes (Other)
  Sender: FDA-Public Use
  Company Number: US-AMGEN-USASP2011026937

PATIENT
  Age: 77 Year
  Sex: Female

DRUGS (2)
  1. ENBREL [Suspect]
     Indication: RHEUMATOID ARTHRITIS
     Dosage: 50 MG, Q2WK
     Dates: start: 20050101
  2. TREXALL [Concomitant]
     Dosage: 1 MG, QWK
     Dates: start: 20030101

REACTIONS (3)
  - RHEUMATOID ARTHRITIS [None]
  - INJECTION SITE HYPERTROPHY [None]
  - JOINT DISLOCATION [None]
